FAERS Safety Report 5283078-5 (Version None)
Quarter: 2007Q1

REPORT INFORMATION
  Report Type: 
  Country: None (occurrence: None)
  Receive Date: 20070327
  Receipt Date: 20070314
  Transmission Date: 20070707
  Serious: Yes (Hospitalization)
  Sender: FDA-Public Use
  Company Number: 2007-00747

PATIENT
  Age: 63 Year
  Sex: Male

DRUGS (2)
  1. VELCADE [Suspect]
     Indication: MULTIPLE MYELOMA
     Dosage: 1.30 MG
     Dates: start: 20070220, end: 20070302
  2. DEXAMETHASONE [Concomitant]

REACTIONS (5)
  - DIARRHOEA [None]
  - FUNGAL INFECTION [None]
  - INFECTION [None]
  - PNEUMONIA [None]
  - STOMATITIS [None]
